FAERS Safety Report 5040486-5 (Version None)
Quarter: 2006Q2

REPORT INFORMATION
  Report Type: 
  Country: None (occurrence: None)
  Receive Date: 20060630
  Receipt Date: 20051025
  Transmission Date: 20061013
  Serious: Yes (Hospitalization, Disabling)
  Sender: FDA-Public Use
  Company Number: US-ROCHE-422740

PATIENT
  Age: 14 Year
  Sex: Female
  Weight: 63.5 kg

DRUGS (2)
  1. ACCUTANE [Suspect]
     Indication: ACNE
     Route: 048
     Dates: start: 19991011, end: 20000615
  2. LORTAB [Concomitant]
     Indication: PAIN
     Dates: start: 20041209

REACTIONS (19)
  - APPENDICECTOMY [None]
  - ASTHMA [None]
  - BACK INJURY [None]
  - COLITIS [None]
  - COLITIS ULCERATIVE [None]
  - CYSTITIS [None]
  - EPISTAXIS [None]
  - FALL [None]
  - GASTROINTESTINAL DISORDER [None]
  - GLOMERULONEPHRITIS PROLIFERATIVE [None]
  - INFLAMMATORY BOWEL DISEASE [None]
  - INTESTINAL HAEMORRHAGE [None]
  - LIP ULCERATION [None]
  - MENISCUS LESION [None]
  - NASAL CONGESTION [None]
  - PNEUMONIA [None]
  - PREGNANCY [None]
  - SINUSITIS [None]
  - UPPER RESPIRATORY TRACT INFECTION [None]
